FAERS Safety Report 11360092 (Version 1)
Quarter: 2015Q3

REPORT INFORMATION
  Report Type: Spontaneous
  Country: FR (occurrence: FR)
  Receive Date: 20150810
  Receipt Date: 20150810
  Transmission Date: 20151125
  Serious: Yes (Death, Hospitalization)
  Sender: FDA-Public Use
  Company Number: FR-ACCORD-032833

PATIENT
  Age: 65 Year
  Sex: Female

DRUGS (1)
  1. METHOTREXATE [Suspect]
     Active Substance: METHOTREXATE
     Indication: RHEUMATOID ARTHRITIS

REACTIONS (9)
  - Stenotrophomonas infection [Unknown]
  - Histiocytosis haematophagic [Unknown]
  - Multi-organ failure [Fatal]
  - Histoplasmosis disseminated [Fatal]
  - Pneumonia [Unknown]
  - Hyperlactacidaemia [Unknown]
  - Infection parasitic [Unknown]
  - Herpes simplex [Unknown]
  - Acute kidney injury [Unknown]
